FAERS Safety Report 23037939 (Version 1)
Quarter: 2023Q4

REPORT INFORMATION
  Report Type: Spontaneous
  Country: US (occurrence: None)
  Receive Date: 20231005
  Receipt Date: 20231005
  Transmission Date: 20240109
  Serious: No
  Sender: FDA-Public Use
  Company Number: None

PATIENT
  Sex: Male

DRUGS (2)
  1. LACTASE [Suspect]
     Active Substance: LACTASE
     Dosage: OTHER STRENGTH : FCC;?OTHER QUANTITY : 3 TABLET(S);?FREQUENCY : AS NEEDED;?
     Route: 048
  2. LACOSAMIDE [Suspect]
     Active Substance: LACOSAMIDE

REACTIONS (2)
  - Product commingling [None]
  - Wrong product administered [None]

NARRATIVE: CASE EVENT DATE: 20231005
